FAERS Safety Report 8019006-9 (Version None)
Quarter: 2012Q1

REPORT INFORMATION
  Report Type: 
  Country: None (occurrence: None)
  Receive Date: 20120103
  Receipt Date: 20111222
  Transmission Date: 20120608
  Serious: Yes (Other)
  Sender: FDA-Public Use
  Company Number: US-ELI_LILLY_AND_COMPANY-US201112007510

PATIENT
  Age: 62 Year
  Sex: Female

DRUGS (4)
  1. CYMBALTA [Suspect]
     Indication: FIBROMYALGIA
     Dosage: 60 MG, QD
  2. SINGULAIR [Concomitant]
  3. FLEXERIL [Concomitant]
  4. SYNTHROID [Concomitant]

REACTIONS (11)
  - HYPERSENSITIVITY [None]
  - PRURITUS [None]
  - FATIGUE [None]
  - SWELLING FACE [None]
  - SKIN EXFOLIATION [None]
  - LIP SWELLING [None]
  - OEDEMA PERIPHERAL [None]
  - WEIGHT DECREASED [None]
  - WEIGHT INCREASED [None]
  - HYPERHIDROSIS [None]
  - EYE SWELLING [None]
